FAERS Safety Report 8175005-8 (Version None)
Quarter: 2012Q1

REPORT INFORMATION
  Report Type: 
  Country: None (occurrence: None)
  Receive Date: 20120229
  Receipt Date: 20110131
  Transmission Date: 20120608
  Serious: No
  Sender: FDA-Public Use
  Company Number: US-GLAXOSMITHKLINE-A0911251A

PATIENT
  Age: 68 Year
  Sex: Male

DRUGS (3)
  1. MELPHALAN HYDROCHLORIDE [Suspect]
     Indication: MULTIPLE MYELOMA
     Dosage: 10MG SEE DOSAGE TEXT
     Dates: start: 20100502
  2. REVLIMID [Suspect]
     Indication: MULTIPLE MYELOMA
     Dosage: 10MG PER DAY
     Route: 048
     Dates: start: 20100502
  3. PREDNISONE TAB [Concomitant]
     Dates: start: 20100502

REACTIONS (3)
  - NEUTROPHIL COUNT DECREASED [None]
  - DRUG INEFFECTIVE [None]
  - WHITE BLOOD CELL COUNT DECREASED [None]
